FAERS Safety Report 5169314-4 (Version None)
Quarter: 2006Q4

REPORT INFORMATION
  Report Type: 
  Country: None (occurrence: None)
  Receive Date: 20061211
  Receipt Date: 20061019
  Transmission Date: 20070319
  Serious: Yes (Hospitalization)
  Sender: FDA-Public Use
  Company Number: JP-ELI_LILLY_AND_COMPANY-JP200610003679

PATIENT
  Age: 89 Year
  Sex: Female

DRUGS (4)
  1. RALOXIFENE HCL [Suspect]
     Indication: OSTEOPOROSIS POSTMENOPAUSAL
     Dosage: 60 MG, DAILY (1/D)
     Route: 048
     Dates: start: 20050318, end: 20050408
  2. RALOXIFENE HCL [Suspect]
     Dosage: 60 MG, DAILY (1/D)
     Route: 048
     Dates: start: 20050902
  3. ELCITONIN [Concomitant]
     Indication: OSTEOPOROSIS POSTMENOPAUSAL
     Dosage: 20 U, WEEKLY (1/W)
     Route: 030
     Dates: start: 20050318, end: 20050408
  4. ELCITONIN [Concomitant]
     Dosage: 20 U, WEEKLY (1/W)
     Route: 030
     Dates: start: 20050902

REACTIONS (2)
  - CEREBRAL INFARCTION [None]
  - MONOPARESIS [None]
